FAERS Safety Report 6199001-5 (Version None)
Quarter: 2009Q2

REPORT INFORMATION
  Report Type: 
  Country: None (occurrence: None)
  Receive Date: 20090522
  Receipt Date: 20090513
  Transmission Date: 20091009
  Serious: Yes (Other)
  Sender: FDA-Public Use
  Company Number: JP-ELI_LILLY_AND_COMPANY-JP200903005779

PATIENT
  Sex: Female
  Weight: 50.8 kg

DRUGS (7)
  1. EVISTA [Suspect]
     Indication: OSTEOPOROSIS
     Dosage: 60 MG, DAILY (1/D)
     Route: 048
     Dates: start: 20090204, end: 20090204
  2. CELECOXIB [Concomitant]
     Dosage: UNK, UNK
     Route: 048
  3. MUCOSTA [Concomitant]
     Dosage: UNK, UNK
     Route: 048
  4. TAKEPRON [Concomitant]
     Dosage: UNK, UNK
     Route: 048
  5. NORVASC [Concomitant]
     Dosage: UNK, UNK
     Route: 048
  6. LIPITOR [Concomitant]
     Dosage: UNK, UNK
     Route: 048
  7. DEPAKENE [Concomitant]
     Dosage: UNK, UNK
     Route: 048

REACTIONS (1)
  - GASTROINTESTINAL MUCOSAL DISORDER [None]
